FAERS Safety Report 9778451 (Version 1)
Quarter: 2013Q4

REPORT INFORMATION
  Report Type: Spontaneous
  Country: IT (occurrence: IT)
  Receive Date: 20131223
  Receipt Date: 20131223
  Transmission Date: 20140711
  Serious: Yes (Hospitalization)
  Sender: FDA-Public Use
  Company Number: IT-TEVA-452339ISR

PATIENT
  Age: 77 Year
  Sex: Female

DRUGS (4)
  1. FLUOROURACILE [Suspect]
     Indication: BREAST CANCER
     Dosage: 950 MILLIGRAM DAILY;
     Route: 042
     Dates: start: 20131001, end: 20131125
  2. ENDOXAN BAXTER [Suspect]
     Indication: BREAST CANCER
     Dosage: 950 MILLIGRAM DAILY; POWDER FOR SOLUTION FOR INJECTION
     Route: 042
     Dates: start: 20131001, end: 20131125
  3. METOTREXATO HOSPIRA [Suspect]
     Indication: BREAST CANCER
     Dosage: 60 MILLIGRAM DAILY;
     Route: 042
     Dates: start: 20131001, end: 20131125
  4. ISOPTIN 240 MG [Concomitant]

REACTIONS (3)
  - Neutropenia [Recovered/Resolved]
  - Sepsis [Recovered/Resolved]
  - Anaemia [Recovered/Resolved]
